FAERS Safety Report 17662894 (Version 1)
Quarter: 2020Q2

REPORT INFORMATION
  Report Type: Spontaneous
  Country: US (occurrence: US)
  Receive Date: 20200413
  Receipt Date: 20200413
  Transmission Date: 20200713
  Serious: No
  Sender: FDA-Public Use
  Company Number: US-PFIZER INC-2020151646

PATIENT
  Age: 48 Year
  Sex: Male

DRUGS (1)
  1. EUCRISA [Suspect]
     Active Substance: CRISABOROLE
     Dosage: UNK, 2X/DAY [APPLY TO AFFECTED AREA(S)]

REACTIONS (2)
  - Drug ineffective [Unknown]
  - Circumstance or information capable of leading to medication error [Unknown]
